FAERS Safety Report 16034146 (Version 2)
Quarter: 2019Q1

REPORT INFORMATION
  Report Type: Spontaneous
  Country: JP (occurrence: JP)
  Receive Date: 20190305
  Receipt Date: 20190318
  Transmission Date: 20190418
  Serious: Yes (Hospitalization)
  Sender: FDA-Public Use
  Company Number: JP-ROCHE-2259515

PATIENT
  Age: 53 Year
  Sex: Female

DRUGS (2)
  1. TAMIFLU [Suspect]
     Active Substance: OSELTAMIVIR PHOSPHATE
     Route: 048
     Dates: start: 20190125, end: 20190125
  2. TAMIFLU [Suspect]
     Active Substance: OSELTAMIVIR PHOSPHATE
     Indication: ANTIVIRAL PROPHYLAXIS
     Dosage: MOST RECENT DOSE ON 25/JAN/2019.
     Route: 048
     Dates: start: 20190123, end: 20190124

REACTIONS (6)
  - Faeces soft [Unknown]
  - Water intoxication [Recovering/Resolving]
  - Accidental overdose [Unknown]
  - Nausea [Unknown]
  - Hyponatraemia [Recovered/Resolved]
  - Vomiting [Unknown]

NARRATIVE: CASE EVENT DATE: 20190123
